FAERS Safety Report 6518717-1 (Version None)
Quarter: 2009Q4

REPORT INFORMATION
  Report Type: 
  Country: None (occurrence: None)
  Receive Date: 20091228
  Receipt Date: 20091223
  Transmission Date: 20100525
  Serious: Yes (Death, Hospitalization)
  Sender: FDA-Public Use
  Company Number: PHHY2009CA55857

PATIENT
  Sex: Female

DRUGS (1)
  1. EXJADE [Suspect]
     Indication: APLASTIC ANAEMIA
     Dosage: 1500 MG, UNK
     Dates: start: 20081201

REACTIONS (7)
  - DEATH [None]
  - DIARRHOEA [None]
  - ENDOTRACHEAL INTUBATION [None]
  - FATIGUE [None]
  - PNEUMONIA [None]
  - PRODUCTIVE COUGH [None]
  - VOMITING [None]
